FAERS Safety Report 8184401-4 (Version None)
Quarter: 2012Q1

REPORT INFORMATION
  Report Type: 
  Country: None (occurrence: None)
  Receive Date: 20120305
  Receipt Date: 20120220
  Transmission Date: 20120608
  Serious: Yes (Other)
  Sender: FDA-Public Use
  Company Number: IT-MYLANLABS-2012S1004522

PATIENT

DRUGS (3)
  1. ANESTHETICS [Concomitant]
  2. HEPARIN [Concomitant]
  3. MELPHALAN HYDROCHLORIDE [Suspect]
     Indication: RETINOBLASTOMA
     Route: 013

REACTIONS (1)
  - RETINOBLASTOMA [None]
